FAERS Safety Report 21973146 (Version 3)
Quarter: 2023Q1

REPORT INFORMATION
  Report Type: Spontaneous
  Country: JP (occurrence: JP)
  Receive Date: 20230209
  Receipt Date: 20230315
  Transmission Date: 20230418
  Serious: Yes (Life-Threatening, Other)
  Sender: FDA-Public Use
  Company Number: JP-PFIZER INC-PV202300023835

PATIENT
  Age: 85 Year
  Sex: Female
  Weight: 39 kg

DRUGS (5)
  1. RHEUMATREX [Suspect]
     Active Substance: METHOTREXATE SODIUM
     Indication: Rheumatoid arthritis
     Dosage: 4 MG, WEEKLY (2 MG AFTER BREAKFAST AND DINNER, EVERY MONDAY)
     Route: 048
     Dates: start: 20200603, end: 20221226
  2. ELDECALCITOL [Concomitant]
     Active Substance: ELDECALCITOL
     Dosage: UNK
     Route: 048
     Dates: end: 20221226
  3. FOLIC ACID [Concomitant]
     Active Substance: FOLIC ACID
     Dosage: UNK
     Route: 048
     Dates: start: 20200603, end: 20221226
  4. BUCILLAMINE [Concomitant]
     Active Substance: BUCILLAMINE
     Dosage: UNK
     Route: 048
     Dates: start: 20200603, end: 20221226
  5. UNISIA [Concomitant]
     Active Substance: AMLODIPINE BESYLATE\CANDESARTAN CILEXETIL
     Dosage: UNK
     Route: 048
     Dates: end: 20221226

REACTIONS (2)
  - Pancytopenia [Recovered/Resolved]
  - Contraindicated product administered [Unknown]

NARRATIVE: CASE EVENT DATE: 20200603
